FAERS Safety Report 13405058 (Version 2)
Quarter: 2017Q2

REPORT INFORMATION
  Report Type: Spontaneous
  Country: US (occurrence: US)
  Receive Date: 20170405
  Receipt Date: 20170518
  Transmission Date: 20170830
  Serious: Yes (Other)
  Sender: FDA-Public Use
  Company Number: US-SA-2017SA055468

PATIENT
  Age: 62 Year
  Sex: Female

DRUGS (5)
  1. LANTUS SOLOSTAR [Suspect]
     Active Substance: INSULIN GLARGINE
     Indication: TYPE 2 DIABETES MELLITUS
     Dosage: DOSE:24 UNIT(S)
     Route: 051
     Dates: start: 2013
  2. VICTOZA [Suspect]
     Active Substance: LIRAGLUTIDE
     Indication: TYPE 2 DIABETES MELLITUS
     Route: 065
  3. SOLOSTAR [Concomitant]
     Active Substance: DEVICE
     Indication: TYPE 2 DIABETES MELLITUS
     Dates: start: 2013
  4. NOVOLOG [Suspect]
     Active Substance: INSULIN ASPART
     Indication: TYPE 2 DIABETES MELLITUS
     Dosage: DOSE:SLIDING SCALE (8-13 UNITS)
     Route: 065
  5. FLEXPEN [Concomitant]
     Active Substance: UNSPECIFIED INGREDIENT
     Indication: TYPE 2 DIABETES MELLITUS

REACTIONS (15)
  - Bulimia nervosa [Unknown]
  - Hepatic failure [Unknown]
  - Splenomegaly [Unknown]
  - Hypometabolism [Unknown]
  - Blood glucose abnormal [Not Recovered/Not Resolved]
  - Muscle spasms [Unknown]
  - Pancreatic disorder [Unknown]
  - Blood glucose decreased [Unknown]
  - Blood potassium decreased [Unknown]
  - Dizziness [Unknown]
  - Headache [Unknown]
  - Gastric varices [Unknown]
  - Fatigue [Unknown]
  - Weight increased [Unknown]
  - Hypersomnia [Unknown]
